FAERS Safety Report 10228566 (Version 2)
Quarter: 2015Q1

REPORT INFORMATION
  Report Type: Spontaneous
  Country: US (occurrence: US)
  Receive Date: 20140610
  Receipt Date: 20150126
  Transmission Date: 20150720
  Serious: Yes (Hospitalization, Other)
  Sender: FDA-Public Use
  Company Number: US-BAYER-2014-085610

PATIENT
  Age: 18 Year
  Sex: Female
  Weight: 104.31 kg

DRUGS (3)
  1. YAZ [Suspect]
     Active Substance: DROSPIRENONE\ETHINYL ESTRADIOL
     Indication: CONTRACEPTION
     Dosage: UNK
     Dates: start: 201009, end: 201104
  2. YASMIN [Suspect]
     Active Substance: DROSPIRENONE\ETHINYL ESTRADIOL
     Dosage: UNK
     Dates: start: 2009, end: 2011
  3. SULFAMETHOXAZOLE [Concomitant]
     Active Substance: SULFAMETHOXAZOLE
     Dosage: UNK
     Dates: start: 20110323

REACTIONS (12)
  - Pelvic venous thrombosis [Recovered/Resolved]
  - General physical health deterioration [None]
  - Pulmonary embolism [Recovered/Resolved]
  - Anxiety [None]
  - Cerebrovascular accident [None]
  - Pain [None]
  - Abdominal pain [None]
  - Injury [None]
  - Emotional distress [None]
  - Renal artery thrombosis [None]
  - Intracardiac thrombus [None]
  - Cholelithiasis [None]

NARRATIVE: CASE EVENT DATE: 201010
